FAERS Safety Report 8124678-4 (Version None)
Quarter: 2012Q1

REPORT INFORMATION
  Report Type: 
  Country: None (occurrence: None)
  Receive Date: 20120209
  Receipt Date: 20120209
  Transmission Date: 20120608
  Serious: Yes (Other)
  Sender: FDA-Public Use
  Company Number: None

PATIENT
  Age: 60 Year
  Sex: Female
  Weight: 58.059 kg

DRUGS (1)
  1. MONISTAT [Suspect]
     Indication: FUNGAL INFECTION
     Dates: start: 20120208, end: 20120208

REACTIONS (5)
  - CRYING [None]
  - VULVOVAGINAL BURNING SENSATION [None]
  - VULVOVAGINAL SWELLING [None]
  - CONDITION AGGRAVATED [None]
  - VULVOVAGINAL PRURITUS [None]
